FAERS Safety Report 11544227 (Version 1)
Quarter: 2015Q3

REPORT INFORMATION
  Report Type: Report from Study
  Country: US (occurrence: US)
  Receive Date: 20150924
  Receipt Date: 20150924
  Transmission Date: 20151125
  Serious: Yes (Congenital Anomaly, Other)
  Sender: FDA-Public Use
  Company Number: US-AUROBINDO PHARMA GMBH-AUR-APL-2014-06972

PATIENT

DRUGS (2)
  1. LAMIVUDINE AND ZIDOVUDINE TABLETS (LAMIVUDINE, ZIDOVUDINE) TABLET [Suspect]
     Active Substance: LAMIVUDINE\ZIDOVUDINE
     Indication: ANTIRETROVIRAL THERAPY
     Dosage: 2 DF, UNK
     Route: 064
     Dates: start: 20120810, end: 20130621
  2. KALETRA [Suspect]
     Active Substance: LOPINAVIR\RITONAVIR
     Indication: ANTIRETROVIRAL THERAPY
     Dosage: 4 DF, UNK
     Route: 064
     Dates: start: 20120810

REACTIONS (8)
  - Hydrocephalus [Unknown]
  - Maternal drugs affecting foetus [None]
  - Spina bifida [Unknown]
  - Foetal exposure during pregnancy [Unknown]
  - Meningomyelocele [Unknown]
  - Arnold-Chiari malformation [Unknown]
  - Neural tube defect [Unknown]
  - Congenital central nervous system anomaly [Unknown]
